FAERS Safety Report 26203350 (Version 1)
Quarter: 2025Q4

REPORT INFORMATION
  Report Type: Spontaneous
  Country: RU (occurrence: RU)
  Receive Date: 20251226
  Receipt Date: 20251226
  Transmission Date: 20260117
  Serious: Yes (Death, Other)
  Sender: ELI LILLY AND COMPANY
  Company Number: RU-ELI_LILLY_AND_COMPANY-RU202512030398

PATIENT
  Age: 48 Year
  Sex: Male
  Weight: 86 kg

DRUGS (1)
  1. RAMUCIRUMAB [Suspect]
     Active Substance: RAMUCIRUMAB
     Indication: Hepatocellular carcinoma
     Dosage: 8 MG/KG, CYCLICAL
     Route: 065
     Dates: start: 202303, end: 202305

REACTIONS (3)
  - Haemorrhage [Fatal]
  - Hepatic cirrhosis [Unknown]
  - Varicose vein [Unknown]

NARRATIVE: CASE EVENT DATE: 20230501
